FAERS Safety Report 4854815-6 (Version None)
Quarter: 2005Q4

REPORT INFORMATION
  Report Type: 
  Country: None (occurrence: None)
  Receive Date: 20051213
  Receipt Date: 20051130
  Transmission Date: 20060501
  Serious: Yes (Hospitalization)
  Sender: FDA-Public Use
  Company Number: 2005162372

PATIENT
  Age: 30 Year
  Sex: Male

DRUGS (6)
  1. ATARAX [Suspect]
     Indication: DYSTHYMIC DISORDER
  2. FLUPENTHIXOL (FLUPENTHIXOL) [Suspect]
     Indication: PSYCHOTIC DISORDER
  3. ZOLPIDEM TARTRATE [Suspect]
     Indication: SLEEP DISORDER
     Dosage: ORAL
     Route: 048
  4. OLANZAPINE [Suspect]
     Indication: PROPHYLACTIC CHEMOTHERAPY
     Dosage: ORAL
  5. ESCITALOPRAM (ESCITALOPRAM) [Suspect]
     Indication: DYSTHYMIC DISORDER
     Dosage: ORAL
     Route: 048
  6. MIANSERIN HYDROCHLORIDE (MIANSERIN HYDROCHLORIDE) [Suspect]
     Indication: DYSTHYMIC DISORDER
     Dosage: ORAL
     Route: 048

REACTIONS (2)
  - DRUG TOXICITY [None]
  - SOMNOLENCE [None]
